FAERS Safety Report 24061360 (Version 5)
Quarter: 2024Q3

REPORT INFORMATION
  Report Type: Spontaneous
  Country: US (occurrence: US)
  Receive Date: 20240708
  Receipt Date: 20240903
  Transmission Date: 20241016
  Serious: No
  Sender: PFIZER
  Company Number: US-PFIZER INC-202400206898

PATIENT
  Age: 67 Year
  Sex: Female

DRUGS (1)
  1. PREMARIN [Suspect]
     Active Substance: ESTROGENS, CONJUGATED
     Dosage: 0.5 (UNIT UNKNOWN), 3 TIMES A WEEK (TWICE ON WEDNESDAY AND FRIDAY)

REACTIONS (5)
  - Drug hypersensitivity [Unknown]
  - Burning sensation [Unknown]
  - Pruritus [Unknown]
  - Discomfort [Unknown]
  - Off label use [Unknown]
